FAERS Safety Report 6004574-9 (Version None)
Quarter: 2008Q4

REPORT INFORMATION
  Report Type: 
  Country: None (occurrence: None)
  Receive Date: 20081216
  Receipt Date: 20071130
  Transmission Date: 20090506
  Serious: No
  Sender: FDA-Public Use
  Company Number: US-BRISTOL-MYERS SQUIBB COMPANY-14000301

PATIENT
  Age: 78 Year
  Sex: Female
  Weight: 49 kg

DRUGS (4)
  1. PRAVACHOL [Suspect]
     Route: 048
     Dates: start: 20070901
  2. ACCUPRIL [Concomitant]
  3. SYNTHROID [Concomitant]
  4. ASPIRIN [Concomitant]

REACTIONS (1)
  - DERMATITIS ACNEIFORM [None]
